FAERS Safety Report 15084696 (Version 9)
Quarter: 2021Q1

REPORT INFORMATION
  Report Type: Report from Study
  Country: CN (occurrence: CN)
  Receive Date: 20180628
  Receipt Date: 20210202
  Transmission Date: 20210419
  Serious: Yes (Death, Other)
  Sender: FDA-Public Use
  Company Number: CN-AMGEN-CHNCT2018087204

PATIENT
  Age: 48 Year
  Sex: Male
  Weight: 69 kg

DRUGS (16)
  1. BLINATUMOMAB [Suspect]
     Active Substance: BLINATUMOMAB
     Indication: B PRECURSOR TYPE ACUTE LEUKAEMIA
     Dosage: 28 MICROGRAM, QD
     Route: 042
     Dates: start: 20180509, end: 20180608
  2. DEXAMETHASONE SODIUM PHOSPHATE. [Concomitant]
     Active Substance: DEXAMETHASONE SODIUM PHOSPHATE
     Dosage: 2 MILLIGRAM
     Dates: start: 20180704, end: 20180719
  3. CYTARABINE. [Concomitant]
     Active Substance: CYTARABINE
     Dosage: 50 MILLIGRAM
     Dates: start: 20180424, end: 20180611
  4. ACICLOVIR [Concomitant]
     Active Substance: ACYCLOVIR
     Dosage: 400 MILLIGRAM
     Route: 048
     Dates: start: 20180509, end: 20180611
  5. ESTAZOLAM. [Concomitant]
     Active Substance: ESTAZOLAM
     Dosage: 1?2 MILLIGRAM
     Route: 048
     Dates: start: 20180525, end: 20180610
  6. POTASSIUM CHLORIDE. [Concomitant]
     Active Substance: POTASSIUM CHLORIDE
     Dosage: 1 GRAM AND  10?60 MILLITRE (10 %)
     Dates: start: 20180510, end: 20180710
  7. FLUCONAZOLE. [Concomitant]
     Active Substance: FLUCONAZOLE
     Dosage: 150 MILLIGRAM
     Route: 048
     Dates: start: 20180509, end: 20180611
  8. DEXAMETHASON [Concomitant]
     Active Substance: DEXAMETHASONE
     Dosage: 5?20 MILLIGRAM
     Route: 042
     Dates: start: 20180510, end: 20180611
  9. LANSOPRAZOLE. [Concomitant]
     Active Substance: LANSOPRAZOLE
     Dosage: 30 MILLIGRAM
     Route: 042
     Dates: start: 20180510, end: 20180720
  10. FILGRASTIM [Concomitant]
     Active Substance: FILGRASTIM
     Dosage: 200?300 MICROGRAM
     Route: 058
     Dates: start: 20180510, end: 20180527
  11. CALCIUM GLUCONATE. [Concomitant]
     Active Substance: CALCIUM GLUCONATE
     Dosage: 1 GRAM
     Route: 042
     Dates: start: 20180527, end: 20180527
  12. HUMAN ALBUMIN [Concomitant]
     Active Substance: ALBUMIN HUMAN
     Dosage: 20 GRAM
     Route: 042
     Dates: start: 20180626, end: 20180629
  13. CALCIUM CARBONATE AND VITAMIN D [Concomitant]
     Active Substance: CALCIUM CARBONATE\VITAMIN D
     Dosage: 600 MILLIGRAM
     Route: 048
     Dates: start: 20180606, end: 20180720
  14. LIDOCAINE. [Concomitant]
     Active Substance: LIDOCAINE
     Dosage: 10 MILLIGRAM
     Dates: start: 20180611, end: 20180611
  15. SODIUM BICARBONATE. [Concomitant]
     Active Substance: SODIUM BICARBONATE
     Dosage: 125 MILLILITER
     Dates: start: 20180509, end: 20180719
  16. POLYENE PHOSPHATIDYLCHOLINE [Concomitant]
     Active Substance: PHOSPHOLIPID
     Dosage: 465 MILLIGRAM
     Route: 042
     Dates: start: 20180706, end: 20180706

REACTIONS (1)
  - Pneumonitis [Fatal]

NARRATIVE: CASE EVENT DATE: 20180625
